FAERS Safety Report 9833274 (Version 1)
Quarter: 2014Q1

REPORT INFORMATION
  Report Type: Spontaneous
  Country: US (occurrence: US)
  Receive Date: 20140121
  Receipt Date: 20140121
  Transmission Date: 20141002
  Serious: Yes (Hospitalization)
  Sender: FDA-Public Use
  Company Number: US-TAKEDA-2014TUS000395

PATIENT
  Sex: 0

DRUGS (1)
  1. BRINTELLIX [Suspect]
     Dosage: UNK

REACTIONS (2)
  - Dehydration [Unknown]
  - Vomiting [Unknown]
